FAERS Safety Report 7952386-9 (Version None)
Quarter: 2011Q4

REPORT INFORMATION
  Report Type: 
  Country: None (occurrence: None)
  Receive Date: 20111201
  Receipt Date: 20111122
  Transmission Date: 20120403
  Serious: Yes (Hospitalization)
  Sender: FDA-Public Use
  Company Number: US-GLAXOSMITHKLINE-A0756572A

PATIENT
  Age: 55 Year
  Sex: Male
  Weight: 93.2 kg

DRUGS (2)
  1. AVANDIA [Suspect]
     Indication: TYPE 2 DIABETES MELLITUS
     Dosage: 8MG PER DAY
     Route: 048
     Dates: start: 19991110, end: 20070101
  2. AVANDAMET [Suspect]
     Indication: TYPE 2 DIABETES MELLITUS
     Route: 048
     Dates: start: 20050830, end: 20051030

REACTIONS (6)
  - CORONARY ARTERY DISEASE [None]
  - CARDIOVASCULAR DISORDER [None]
  - CARDIAC DISORDER [None]
  - ARTERIOSCLEROSIS [None]
  - ACUTE CORONARY SYNDROME [None]
  - MYOCARDIAL INFARCTION [None]
